FAERS Safety Report 6991822-1 (Version None)
Quarter: 2010Q3

REPORT INFORMATION
  Report Type: 
  Country: None (occurrence: None)
  Receive Date: 20100917
  Receipt Date: 20100908
  Transmission Date: 20110219
  Serious: Yes (Other)
  Sender: FDA-Public Use
  Company Number: DE-BAYER-200928852GPV

PATIENT
  Age: 26 Year
  Sex: Female
  Weight: 60 kg

DRUGS (2)
  1. QLAIRA [Suspect]
     Indication: CONTRACEPTION
     Route: 048
     Dates: start: 20090701, end: 20090722
  2. THYROXINE 75 [Concomitant]
     Indication: THYROID DISORDER
     Route: 048

REACTIONS (2)
  - GESTATIONAL DIABETES [None]
  - PREGNANCY ON ORAL CONTRACEPTIVE [None]
